FAERS Safety Report 6821789-8 (Version None)
Quarter: 2010Q3

REPORT INFORMATION
  Report Type: 
  Country: None (occurrence: None)
  Receive Date: 20100707
  Receipt Date: 20090827
  Transmission Date: 20110219
  Serious: No
  Sender: FDA-Public Use
  Company Number: US-AMGEN-KDL362126

PATIENT
  Sex: Female

DRUGS (3)
  1. PROCRIT [Suspect]
     Indication: MYELODYSPLASTIC SYNDROME
  2. NEUPOGEN [Suspect]
     Indication: CHEMOTHERAPY
  3. AZACITIDINE [Concomitant]

REACTIONS (1)
  - THERAPEUTIC RESPONSE DECREASED [None]
